FAERS Safety Report 6216796-2 (Version None)
Quarter: 2009Q2

REPORT INFORMATION
  Report Type: 
  Country: None (occurrence: None)
  Receive Date: 20090603
  Receipt Date: 20090603
  Transmission Date: 20091009
  Serious: Yes (Other)
  Sender: FDA-Public Use
  Company Number: None

PATIENT
  Sex: Female

DRUGS (2)
  1. ACTONEL [Suspect]
     Indication: OSTEOPENIA
     Dosage: 35 MG ONCE A WK.
     Dates: start: 20060201
  2. ACTONEL [Suspect]
     Indication: OSTEOPENIA
     Dosage: 35 MG ONCE A WK.
     Dates: start: 20080601

REACTIONS (3)
  - FATIGUE [None]
  - MYALGIA [None]
  - OSTEONECROSIS [None]
